FAERS Safety Report 13320906 (Version 1)
Quarter: 2020Q3

REPORT INFORMATION
  Report Type: Report from Study
  Country: JP (occurrence: JP)
  Receive Date: 20170309
  Receipt Date: 20170309
  Transmission Date: 20201105
  Serious: Yes (Other)
  Sender: FDA-Public Use
  Company Number: JP-ROCHE-1880440

PATIENT
  Age: 68 Year
  Sex: Female
  Weight: 57 kg

DRUGS (1)
  1. ALECTINIB. [Suspect]
     Active Substance: ALECTINIB
     Indication: LUNG ADENOCARCINOMA
     Route: 048
     Dates: start: 20150616, end: 20161216

REACTIONS (2)
  - Hepatic function abnormal [Not Recovered/Not Resolved]
  - Cholangiocarcinoma [Unknown]

NARRATIVE: CASE EVENT DATE: 20161216
